FAERS Safety Report 9501532 (Version 3)
Quarter: 2013Q3

REPORT INFORMATION
  Report Type: Spontaneous
  Country: PT (occurrence: PT)
  Receive Date: 20130905
  Receipt Date: 20130918
  Transmission Date: 20140515
  Serious: Yes (Death, Hospitalization)
  Sender: FDA-Public Use
  Company Number: PT-BRISTOL-MYERS SQUIBB COMPANY-19224278

PATIENT
  Age: 71 Year
  Sex: Male

DRUGS (4)
  1. REYATAZ [Suspect]
     Indication: AIDS DEMENTIA COMPLEX
     Route: 048
     Dates: start: 20130704
  2. NORVIR [Suspect]
     Indication: AIDS DEMENTIA COMPLEX
  3. TRUVADA [Suspect]
     Indication: AIDS DEMENTIA COMPLEX
  4. GANCICLOVIR [Suspect]
     Indication: AIDS DEMENTIA COMPLEX
     Route: 042
     Dates: start: 20130706

REACTIONS (1)
  - Myocardial infarction [Fatal]
